FAERS Safety Report 6379480-0 (Version None)
Quarter: 2009Q3

REPORT INFORMATION
  Report Type: 
  Country: None (occurrence: None)
  Receive Date: 20090928
  Receipt Date: 20090922
  Transmission Date: 20100115
  Serious: Yes (Other)
  Sender: FDA-Public Use
  Company Number: B0595061A

PATIENT
  Sex: Female

DRUGS (11)
  1. ZOFRAN [Suspect]
     Indication: DRUG USE FOR UNKNOWN INDICATION
     Dosage: 8MG PER DAY
     Route: 048
     Dates: start: 20080830, end: 20081211
  2. TEMODAL [Suspect]
     Indication: DRUG USE FOR UNKNOWN INDICATION
     Route: 065
     Dates: start: 20081111, end: 20081209
  3. UNKNOWN DRUG [Suspect]
     Indication: DRUG USE FOR UNKNOWN INDICATION
     Dosage: 20MG PER DAY
     Route: 048
     Dates: start: 20081215, end: 20081218
  4. DIFLUCAN [Suspect]
     Indication: DRUG USE FOR UNKNOWN INDICATION
     Dosage: 100MG PER DAY
     Route: 048
     Dates: start: 20081114
  5. BACTRIM DS [Suspect]
     Indication: DRUG USE FOR UNKNOWN INDICATION
     Dosage: 800MG SEE DOSAGE TEXT
     Route: 048
     Dates: start: 20081111, end: 20081215
  6. CLARITHROMYCIN [Suspect]
     Indication: DRUG USE FOR UNKNOWN INDICATION
     Dosage: 500MG TWICE PER DAY
     Route: 042
     Dates: start: 20081218, end: 20081222
  7. TIENAM [Suspect]
     Indication: DRUG USE FOR UNKNOWN INDICATION
     Dosage: 500MG FOUR TIMES PER DAY
     Route: 042
     Dates: start: 20081218, end: 20081230
  8. DEXAMETHASONE 4MG TAB [Concomitant]
  9. LYRICA [Concomitant]
     Dosage: 100MG TWICE PER DAY
     Route: 048
     Dates: start: 20081113
  10. NEXIUM [Concomitant]
     Dosage: 40MG PER DAY
  11. ACETAMINOPHEN [Concomitant]
     Dosage: 1G THREE TIMES PER DAY
     Route: 048

REACTIONS (1)
  - LIVER INJURY [None]
